FAERS Safety Report 6956459-9 (Version None)
Quarter: 2010Q3

REPORT INFORMATION
  Report Type: 
  Country: None (occurrence: None)
  Receive Date: 20100830
  Receipt Date: 20100824
  Transmission Date: 20110219
  Serious: Yes (Other)
  Sender: FDA-Public Use
  Company Number: US-BAYER-201031539NA

PATIENT
  Age: 50 Year
  Sex: Male

DRUGS (3)
  1. AVELOX [Suspect]
     Indication: BRONCHITIS
     Dates: start: 20091101
  2. NIACIN [Concomitant]
  3. CRESTOR [Concomitant]

REACTIONS (3)
  - CONFUSIONAL STATE [None]
  - FEELING DRUNK [None]
  - MENTAL IMPAIRMENT [None]
